FAERS Safety Report 18710805 (Version 1)
Quarter: 2021Q1

REPORT INFORMATION
  Report Type: Spontaneous
  Country: FR (occurrence: FR)
  Receive Date: 20210107
  Receipt Date: 20210107
  Transmission Date: 20210419
  Serious: Yes (Congenital Anomaly, Other)
  Sender: FDA-Public Use
  Company Number: FR-ROCHE-2742830

PATIENT
  Sex: Male

DRUGS (9)
  1. CLOBAZAM. [Suspect]
     Active Substance: CLOBAZAM
     Dosage: MATERNAL DOSING REGIMEN: ONCE IN 12 HOURS
     Route: 064
     Dates: start: 20031212, end: 20040425
  2. DEPAKINE CHRONO [Suspect]
     Active Substance: VALPROATE SODIUM
     Dosage: MATERNAL DOSE: 1500 MG (ONE IN THE MORNING, TWO IN THE EVENING)
     Route: 064
     Dates: start: 20031002
  3. SPECIAFOLDINE [Concomitant]
     Active Substance: FOLIC ACID
     Route: 064
     Dates: start: 20040305
  4. CLONAZEPAM. [Suspect]
     Active Substance: CLONAZEPAM
     Indication: PRODUCT USED FOR UNKNOWN INDICATION
     Dosage: MATERNAL DOSE: 5 TO 10 DROPS THE EVENING?ORAL DROPS, SOLUTION
     Route: 064
     Dates: start: 20031002, end: 20040618
  5. CLOBAZAM. [Suspect]
     Active Substance: CLOBAZAM
     Indication: PRODUCT USED FOR UNKNOWN INDICATION
     Dosage: MATERNAL DOSING REGIMEN: ONE BY DAY IF IT^S NECESSARY
     Route: 064
     Dates: start: 20040426, end: 20040618
  6. GARDENAL [Suspect]
     Active Substance: PHENOBARBITAL
     Indication: PRODUCT USED FOR UNKNOWN INDICATION
     Dosage: MATERNAL DOSING REGIMEN: TWICE IN THE MORNING, THRICE IN THE EVENING
     Route: 064
     Dates: start: 20031002, end: 20040618
  7. DEPAKINE CHRONO [Suspect]
     Active Substance: VALPROATE SODIUM
     Indication: PRODUCT USED FOR UNKNOWN INDICATION
     Dosage: MATERNAL DOSE: 2500 MG (TWO IN THE MORNING THREE IN THE EVENING )
     Route: 064
     Dates: end: 20040618
  8. DEPAKINE CHRONO [Suspect]
     Active Substance: VALPROATE SODIUM
     Dosage: MATERNAL DOSE: 2500 MG, TWO IN THE MORNING THREE IN THE EVENING
     Route: 064
     Dates: start: 20040426
  9. CLOBAZAM. [Suspect]
     Active Substance: CLOBAZAM
     Dosage: MATERNAL DOSING REGIMEN: ONCE IN 8 HOURS
     Route: 064
     Dates: start: 20031002, end: 20031211

REACTIONS (38)
  - Hyperaesthesia [Unknown]
  - Dysgraphia [Unknown]
  - Visual impairment [Unknown]
  - Disturbance in attention [Unknown]
  - Autism spectrum disorder [Unknown]
  - Sluggishness [Unknown]
  - Cognitive disorder [Unknown]
  - Psychomotor skills impaired [Unknown]
  - Ear disorder [Unknown]
  - Eye disorder [Unknown]
  - Scoliosis [Unknown]
  - Foot deformity [Unknown]
  - Hypoacusis [Unknown]
  - Accommodation disorder [Unknown]
  - Limb malformation [Unknown]
  - Nasal disorder [Unknown]
  - Conjunctivitis [Unknown]
  - Foot fracture [Unknown]
  - Coordination abnormal [Unknown]
  - Memory impairment [Unknown]
  - Language disorder [Unknown]
  - Apraxia [Unknown]
  - Extraocular muscle paresis [Unknown]
  - Pelvic deformity [Unknown]
  - Fine motor skill dysfunction [Unknown]
  - Hypermetropia [Unknown]
  - Clinodactyly [Unknown]
  - Sleep disorder [Unknown]
  - Foetal anticonvulsant syndrome [Unknown]
  - Pectus excavatum [Unknown]
  - Limb asymmetry [Unknown]
  - Gait disturbance [Unknown]
  - Astigmatism [Unknown]
  - Oropharyngeal discomfort [Unknown]
  - Hyperacusis [Unknown]
  - Hypertelorism of orbit [Unknown]
  - Hypertonia [Unknown]
  - Foetal exposure during pregnancy [Unknown]
